FAERS Safety Report 7997073-6 (Version None)
Quarter: 2011Q4

REPORT INFORMATION
  Report Type: 
  Country: None (occurrence: None)
  Receive Date: 20111216
  Receipt Date: 20111207
  Transmission Date: 20120403
  Serious: Yes (Other)
  Sender: FDA-Public Use
  Company Number: 1133766

PATIENT
  Age: 47 Year
  Sex: Female

DRUGS (1)
  1. PACLITAXEL [Suspect]
     Indication: UTERINE CANCER
     Dosage: 60 MG, CYCLIC, INTRAVENOUS (NOT OTHERWISE SPECIFIED)
     Route: 042
     Dates: start: 20111206, end: 20111206

REACTIONS (1)
  - INFUSION SITE WARMTH [None]
